FAERS Safety Report 25465205 (Version 2)
Quarter: 2025Q3

REPORT INFORMATION
  Report Type: Spontaneous
  Country: EU (occurrence: EU)
  Receive Date: 20250622
  Receipt Date: 20250809
  Transmission Date: 20251020
  Serious: Yes (Life-Threatening)
  Sender: ALEXION PHARMACEUTICALS
  Company Number: EU-AstraZeneca-CH-00894995A

PATIENT
  Age: 65 Year
  Sex: Male

DRUGS (2)
  1. ACALABRUTINIB [Suspect]
     Active Substance: ACALABRUTINIB
     Indication: Chronic lymphocytic leukaemia
     Dosage: 100 MILLIGRAM, Q12H
  2. ENZALUTAMIDE [Concomitant]
     Active Substance: ENZALUTAMIDE
     Route: 065

REACTIONS (1)
  - Pulmonary mass [Unknown]

NARRATIVE: CASE EVENT DATE: 20250501
